FAERS Safety Report 12631781 (Version 2)
Quarter: 2016Q3

REPORT INFORMATION
  Report Type: Spontaneous
  Country: US (occurrence: US)
  Receive Date: 20160808
  Receipt Date: 20160808
  Transmission Date: 20161109
  Serious: No
  Sender: FDA-Public Use
  Company Number: US-BEH-2016061002

PATIENT
  Sex: Female
  Weight: 69 kg

DRUGS (21)
  1. ASPIRIN EC [Concomitant]
     Active Substance: ASPIRIN
  2. OMEPRAZOLE. [Concomitant]
     Active Substance: OMEPRAZOLE
  3. DAYPRO [Concomitant]
     Active Substance: OXAPROZIN
  4. LIDOCAINE/PRILOCAINE [Concomitant]
     Active Substance: LIDOCAINE\PRILOCAINE
  5. EPIPEN [Concomitant]
     Active Substance: EPINEPHRINE
  6. LEVOTHYROXINE. [Concomitant]
     Active Substance: LEVOTHYROXINE
  7. ZOLPIDEM [Concomitant]
     Active Substance: ZOLPIDEM\ZOLPIDEM TARTRATE
  8. VITAMIN E [Concomitant]
     Active Substance: .ALPHA.-TOCOPHEROL
  9. HIZENTRA [Suspect]
     Active Substance: HUMAN IMMUNOGLOBULIN G
     Indication: IMMUNODEFICIENCY COMMON VARIABLE
     Route: 058
  10. ROPINIROLE. [Concomitant]
     Active Substance: ROPINIROLE
  11. LIDOCAINE. [Concomitant]
     Active Substance: LIDOCAINE
  12. CALCIUM CITRATE VITAMIN D [Concomitant]
  13. LISINOPRIL. [Concomitant]
     Active Substance: LISINOPRIL
  14. IRON SUPPLEMENT [Concomitant]
     Active Substance: IRON
  15. TOPIRAMATE. [Concomitant]
     Active Substance: TOPIRAMATE
  16. VITAMIN C [Concomitant]
     Active Substance: ASCORBIC ACID
  17. TYLENOL EXTRA STRENGTH [Concomitant]
     Active Substance: ACETAMINOPHEN
  18. BUDEPRION [Concomitant]
     Active Substance: BUPROPION HYDROCHLORIDE
  19. DIPHENHYDRAMINE. [Concomitant]
     Active Substance: DIPHENHYDRAMINE
  20. FLUTICASONE [Concomitant]
     Active Substance: FLUTICASONE\FLUTICASONE PROPIONATE
  21. FISH OIL [Concomitant]
     Active Substance: FISH OIL

REACTIONS (1)
  - Sinusitis [Unknown]
